FAERS Safety Report 5542065-X (Version None)
Quarter: 2007Q4

REPORT INFORMATION
  Report Type: 
  Country: None (occurrence: None)
  Receive Date: 20071210
  Receipt Date: 20071204
  Transmission Date: 20080405
  Serious: No
  Sender: FDA-Public Use
  Company Number: CH-ASTRAZENECA-2007PK02561

PATIENT
  Age: 70 Year
  Sex: Female

DRUGS (7)
  1. SEROQUEL [Suspect]
     Indication: SCHIZOPHRENIA, PARANOID TYPE
     Dosage: DOSE TITRATION UP TO 300 MG
     Route: 048
  2. DAFALGAN [Concomitant]
  3. LISOPRIL [Concomitant]
  4. FRAXIPARINE [Concomitant]
  5. PRIMPERAN INJ [Concomitant]
  6. BALDRIAN SANSLEPSI [Concomitant]
  7. LORAZEPAM [Concomitant]

REACTIONS (1)
  - LEUKOPENIA [None]
